FAERS Safety Report 7624328-7 (Version None)
Quarter: 2011Q3

REPORT INFORMATION
  Report Type: 
  Country: None (occurrence: None)
  Receive Date: 20110720
  Receipt Date: 20110712
  Transmission Date: 20111222
  Serious: Yes (Other)
  Sender: FDA-Public Use
  Company Number: FR-BAYER-2011-061558

PATIENT
  Age: 24 Year
  Sex: Female

DRUGS (1)
  1. ESTRADIOL VALERATE/DIENOGEST [Suspect]
     Dosage: 1 DF, QD
     Route: 048
     Dates: start: 20100301, end: 20100601

REACTIONS (1)
  - HYPOAESTHESIA [None]
